FAERS Safety Report 6245684-0 (Version None)
Quarter: 2009Q2

REPORT INFORMATION
  Report Type: 
  Country: None (occurrence: None)
  Receive Date: 20090625
  Receipt Date: 20090622
  Transmission Date: 20091009
  Serious: Yes (Life-Threatening, Hospitalization, Other)
  Sender: FDA-Public Use
  Company Number: US-GENENTECH-283600

PATIENT
  Sex: Female
  Weight: 67.12 kg

DRUGS (11)
  1. RITUXAN [Suspect]
     Indication: B-CELL LYMPHOMA
     Dosage: 375 MG/M2, Q3M
     Route: 042
     Dates: start: 20080415
  2. MAGIC MOUTHWASH (BENADRYL, CARAFATE, XYLOCAIN [Concomitant]
     Indication: DRUG USE FOR UNKNOWN INDICATION
  3. LORAZEPAM [Concomitant]
     Indication: DRUG USE FOR UNKNOWN INDICATION
     Dosage: 0.5 MG, PRN
  4. PHENERGAN [Concomitant]
     Indication: DRUG USE FOR UNKNOWN INDICATION
     Dosage: 25 MG, Q6H
     Route: 048
  5. METHADONE [Concomitant]
     Indication: DRUG USE FOR UNKNOWN INDICATION
     Dosage: 10 MG, UNK
  6. XANAX [Concomitant]
     Indication: DRUG USE FOR UNKNOWN INDICATION
     Dosage: 2 MG, UNK
  7. AMITRIPTYLINE HCL [Concomitant]
     Indication: DRUG USE FOR UNKNOWN INDICATION
     Dosage: 25 MG, QHS
  8. ALBUTEROL [Concomitant]
     Indication: DRUG USE FOR UNKNOWN INDICATION
     Dosage: UNK
  9. CITALOPRAM HYDROBROMIDE [Concomitant]
     Indication: DRUG USE FOR UNKNOWN INDICATION
     Dosage: 60 MG, QD
  10. NEURONTIN [Concomitant]
     Indication: DRUG USE FOR UNKNOWN INDICATION
  11. BENZIODARONE [Concomitant]
     Indication: DRUG USE FOR UNKNOWN INDICATION

REACTIONS (2)
  - CHEST PAIN [None]
  - HEPATIC FAILURE [None]
